FAERS Safety Report 5304417-2 (Version None)
Quarter: 2007Q2

REPORT INFORMATION
  Report Type: 
  Country: None (occurrence: None)
  Receive Date: 20070423
  Receipt Date: 20070412
  Transmission Date: 20071010
  Serious: Yes (Other)
  Sender: FDA-Public Use
  Company Number: US-ROCHE-483977

PATIENT
  Age: 20 Year
  Sex: Female
  Weight: 58.5 kg

DRUGS (3)
  1. COPEGUS [Suspect]
     Route: 048
     Dates: start: 20060930, end: 20070221
  2. PEGASYS [Suspect]
     Route: 058
     Dates: start: 20060930, end: 20070221
  3. ORTHO TRI-CYCLEN [Concomitant]

REACTIONS (1)
  - ABORTION SPONTANEOUS [None]
